FAERS Safety Report 24270598 (Version 1)
Quarter: 2024Q3

REPORT INFORMATION
  Report Type: Report from Study
  Country: JP (occurrence: JP)
  Receive Date: 20240831
  Receipt Date: 20240831
  Transmission Date: 20241017
  Serious: Yes (Death, Hospitalization)
  Sender: ABBVIE
  Company Number: JP-ABBVIE-18S-087-2525577-00

PATIENT
  Age: 79 Year
  Sex: Male

DRUGS (4)
  1. CARBIDOPA\LEVODOPA [Suspect]
     Active Substance: CARBIDOPA\LEVODOPA
     Indication: Parkinson^s disease
     Dosage: MD: 7 ML, CD: 2 ML/HR ? 16 HRS, ED: 2 ML/UNIT ? 4
     Route: 050
     Dates: start: 20180510, end: 20210113
  2. CARBIDOPA\LEVODOPA [Suspect]
     Active Substance: CARBIDOPA\LEVODOPA
  3. Aric [Concomitant]
     Indication: Parkinson^s disease
     Dosage: 40 MILLIGRAM
     Route: 048
     Dates: end: 20210113
  4. CARBIDOPA AND LEVODOPA [Concomitant]
     Active Substance: CARBIDOPA\LEVODOPA
     Indication: Parkinson^s disease
     Dosage: 100 MILLIGRAM?CARBIDOPA HYDRATE AND LEVODOPA
     Route: 048
     Dates: end: 20210113

REACTIONS (6)
  - Pneumonia aspiration [Fatal]
  - Product administration error [Unknown]
  - Product storage error [Unknown]
  - Intentional medical device removal by patient [Unknown]
  - Delirium [Recovered/Resolved]
  - Rapid eye movement sleep behaviour disorder [Recovered/Resolved]

NARRATIVE: CASE EVENT DATE: 20190227
